FAERS Safety Report 10240611 (Version 4)
Quarter: 2014Q3

REPORT INFORMATION
  Report Type: Report from Study
  Country: DE (occurrence: DE)
  Receive Date: 20140617
  Receipt Date: 20140808
  Transmission Date: 20150326
  Serious: Yes (Death)
  Sender: FDA-Public Use
  Company Number: DE-BEH-2014043324

PATIENT
  Sex: Female

DRUGS (7)
  1. PRIVIGEN [Suspect]
     Active Substance: HUMAN IMMUNOGLOBULIN G
     Route: 064
     Dates: start: 20101104, end: 20101104
  2. PRIVIGEN [Suspect]
     Active Substance: HUMAN IMMUNOGLOBULIN G
     Route: 064
     Dates: start: 20101210, end: 20101210
  3. CLEXANE [Concomitant]
     Active Substance: ENOXAPARIN SODIUM
  4. PRIVIGEN [Suspect]
     Active Substance: HUMAN IMMUNOGLOBULIN G
     Indication: PROPHYLAXIS
     Route: 064
     Dates: start: 20101021, end: 20101021
  5. PRIVIGEN [Suspect]
     Active Substance: HUMAN IMMUNOGLOBULIN G
     Route: 064
     Dates: start: 20101122, end: 20101122
  6. ASPIRIN. [Concomitant]
     Active Substance: ASPIRIN
  7. GLUCOCORTICOIDS [Concomitant]
     Active Substance: UNSPECIFIED INGREDIENT

REACTIONS (5)
  - Premature baby [Fatal]
  - Muscular dystrophy [Fatal]
  - Foetal exposure during pregnancy [Recovered/Resolved]
  - Bronchopulmonary dysplasia [Fatal]
  - Small for dates baby [Fatal]
